FAERS Safety Report 11718979 (Version 21)
Quarter: 2019Q1

REPORT INFORMATION
  Report Type: Report from Study
  Country: CA (occurrence: CA)
  Receive Date: 20151110
  Receipt Date: 20190116
  Transmission Date: 20190417
  Serious: Yes (Hospitalization, Other)
  Sender: FDA-Public Use
  Company Number: PHHY2015CA005418

PATIENT
  Age: 50 Year
  Sex: Male

DRUGS (8)
  1. SANDOSTATIN [Suspect]
     Active Substance: OCTREOTIDE ACETATE
     Indication: NEUROENDOCRINE TUMOUR
     Dosage: 150 UG, ONCE/SINGLE (TEST DOSE)
     Route: 058
     Dates: start: 20141231, end: 20141231
  2. SANDOSTATIN LAR DEPOT [Suspect]
     Active Substance: OCTREOTIDE ACETATE
     Dosage: 30 MG, QMO (EVERY 4 WEEKS)
     Route: 030
     Dates: start: 20160126, end: 20161122
  3. SANDOSTATIN LAR DEPOT [Suspect]
     Active Substance: OCTREOTIDE ACETATE
     Dosage: 30 MG, QW3 (EVERY THREE WEEKS)
     Route: 030
     Dates: start: 20161221, end: 20170608
  4. SANDOSTATIN LAR DEPOT [Suspect]
     Active Substance: OCTREOTIDE ACETATE
     Indication: NEUROENDOCRINE TUMOUR
     Dosage: 20 MG, QMO (EVERY 28 DAYS)
     Route: 030
     Dates: start: 20150115
  5. SANDOSTATIN LAR DEPOT [Suspect]
     Active Substance: OCTREOTIDE ACETATE
     Dosage: 30 MG, QMO (EVERY 4 WEEKS)
     Route: 030
     Dates: start: 20170628
  6. VANCOMYCIN [Concomitant]
     Active Substance: VANCOMYCIN
     Indication: PRODUCT USED FOR UNKNOWN INDICATION
     Dosage: 125 MG, QID
     Route: 065
  7. TACE [Concomitant]
     Active Substance: CHLOROTRIANISENE
     Indication: PRODUCT USED FOR UNKNOWN INDICATION
     Dosage: UNK
     Route: 065
  8. SANDOSTATIN [Suspect]
     Active Substance: OCTREOTIDE ACETATE
     Dosage: 100 UG, TID FOR 2 WEEKS
     Route: 058
     Dates: start: 20150115, end: 201501

REACTIONS (18)
  - Decreased appetite [Unknown]
  - Blood pressure increased [Unknown]
  - Constipation [Not Recovered/Not Resolved]
  - Clostridium difficile infection [Recovered/Resolved]
  - Diarrhoea [Not Recovered/Not Resolved]
  - Asthenia [Unknown]
  - Metastases to pelvis [Unknown]
  - Back pain [Unknown]
  - Infrequent bowel movements [Unknown]
  - Weight decreased [Recovering/Resolving]
  - Heart rate increased [Unknown]
  - Blood count abnormal [Unknown]
  - Inappropriate schedule of product administration [Unknown]
  - Muscle spasms [Unknown]
  - Malignant neoplasm progression [Unknown]
  - Anxiety [Unknown]
  - Flushing [Unknown]
  - Platelet count decreased [Recovering/Resolving]

NARRATIVE: CASE EVENT DATE: 20150115
